FAERS Safety Report 17985625 (Version 2)
Quarter: 2021Q1

REPORT INFORMATION
  Report Type: Report from Study
  Country: JP (occurrence: JP)
  Receive Date: 20200706
  Receipt Date: 20210207
  Transmission Date: 20210419
  Serious: Yes (Hospitalization, Other)
  Sender: FDA-Public Use
  Company Number: JP-SA-2020SA171040

PATIENT
  Age: 61 Year
  Sex: Female
  Weight: 56.9 kg

DRUGS (23)
  1. ALEMTUZUMAB [Suspect]
     Active Substance: ALEMTUZUMAB
     Dosage: 30 MG, TIW
     Route: 041
     Dates: start: 20200625, end: 20200625
  2. ALEMTUZUMAB [Suspect]
     Active Substance: ALEMTUZUMAB
     Dosage: 10 MG, TIW
     Route: 041
     Dates: start: 20200722, end: 20200722
  3. SULFAMETHOXAZOLE/TRIMETHOPRIM [Suspect]
     Active Substance: SULFAMETHOXAZOLE\TRIMETHOPRIM
     Indication: PNEUMONIA CYTOMEGALOVIRAL
  4. RELVAR [Concomitant]
     Active Substance: FLUTICASONE FUROATE\VILANTEROL TRIFENATATE
     Indication: INFECTION PROPHYLAXIS
     Dosage: UNK, QD
     Route: 055
     Dates: start: 20200630
  5. SULFAMETHOXAZOLE/TRIMETHOPRIM [Suspect]
     Active Substance: SULFAMETHOXAZOLE\TRIMETHOPRIM
     Indication: INFECTION PROPHYLAXIS
     Dosage: 7.5 MG, QD
     Route: 048
     Dates: start: 20200619, end: 20201015
  6. LOXOPROFEN SODIUM [Concomitant]
     Active Substance: LOXOPROFEN SODIUM
     Indication: INFECTION PROPHYLAXIS
     Dosage: 50 MG, QD
     Route: 048
     Dates: start: 20160129
  7. ALEMTUZUMAB [Suspect]
     Active Substance: ALEMTUZUMAB
     Dosage: 10 MG, 1X
     Route: 041
     Dates: start: 20200624, end: 20200624
  8. AMBROXOL HYDROCHLORIDE [Concomitant]
     Active Substance: AMBROXOL HYDROCHLORIDE
     Indication: INFECTION PROPHYLAXIS
     Dosage: 4.5 MG, QD
     Route: 048
     Dates: start: 20160129
  9. FEBURIC [Concomitant]
     Active Substance: FEBUXOSTAT
     Indication: INFECTION PROPHYLAXIS
     Dosage: 40 MG, QD
     Route: 048
     Dates: start: 20160129
  10. KREMEZIN [Concomitant]
     Active Substance: ACTIVATED CHARCOAL
     Indication: INFECTION PROPHYLAXIS
     Dosage: 3000 MG
     Route: 048
     Dates: start: 20201001
  11. CANDESARTAN [CANDESARTAN CILEXETIL] [Concomitant]
     Active Substance: CANDESARTAN CILEXETIL
     Indication: INFECTION PROPHYLAXIS
     Dosage: 8 MG, QD
     Route: 048
     Dates: start: 20160129
  12. AMLODIN [Concomitant]
     Active Substance: AMLODIPINE BESYLATE
     Indication: INFECTION PROPHYLAXIS
     Dosage: 5 MG, QD
     Route: 048
     Dates: start: 20160129
  13. ALEMTUZUMAB [Suspect]
     Active Substance: ALEMTUZUMAB
     Dosage: 3 MG, 1X
     Route: 041
     Dates: start: 20200623, end: 20200623
  14. CEROCRAL [Concomitant]
     Active Substance: IFENPRODIL
     Indication: INFECTION PROPHYLAXIS
     Dosage: 20 MG, QD
     Route: 048
     Dates: start: 20170824
  15. ALEMTUZUMAB [Suspect]
     Active Substance: ALEMTUZUMAB
     Dosage: 10 MG, TIW
     Route: 041
     Dates: start: 20200707, end: 20200707
  16. URSODEOXYCHOLIC ACID [Concomitant]
     Active Substance: URSODIOL
     Indication: INFECTION PROPHYLAXIS
     Dosage: 150 MG, QD
     Route: 048
     Dates: start: 20160129
  17. VALIXA [Concomitant]
     Active Substance: VALGANCICLOVIR
     Indication: INFECTION PROPHYLAXIS
     Dosage: 900 MG, QD
     Route: 048
     Dates: start: 20200630
  18. ALEMTUZUMAB [Suspect]
     Active Substance: ALEMTUZUMAB
     Indication: CHRONIC LYMPHOCYTIC LEUKAEMIA
     Dosage: 30 MG, TIW
     Route: 041
     Dates: start: 20200701, end: 20200701
  19. ALEMTUZUMAB [Suspect]
     Active Substance: ALEMTUZUMAB
     Dosage: 30 MG, TIW
     Route: 041
     Dates: start: 20200729, end: 20200930
  20. FAMCICLOVIR. [Suspect]
     Active Substance: FAMCICLOVIR
     Indication: INFECTION PROPHYLAXIS
     Dosage: 250 MG, QD
     Route: 048
     Dates: end: 20201015
  21. FAMCICLOVIR. [Suspect]
     Active Substance: FAMCICLOVIR
     Indication: PNEUMONIA CYTOMEGALOVIRAL
  22. LANSOPRAZOLE. [Concomitant]
     Active Substance: LANSOPRAZOLE
     Indication: INFECTION PROPHYLAXIS
     Dosage: 15 MG, QD
     Route: 048
     Dates: start: 20160129
  23. VALACICLOVIR [VALACICLOVIR HYDROCHLORIDE] [Concomitant]
     Indication: INFECTION PROPHYLAXIS
     Dosage: 500 MG, QD
     Route: 048
     Dates: start: 20200622, end: 20200709

REACTIONS (4)
  - Tubulointerstitial nephritis [Recovered/Resolved]
  - Cough [Recovering/Resolving]
  - Oropharyngeal pain [Recovering/Resolving]
  - Pneumonia cytomegaloviral [Recovering/Resolving]

NARRATIVE: CASE EVENT DATE: 20200701
